FAERS Safety Report 5075192-4 (Version None)
Quarter: 2006Q3

REPORT INFORMATION
  Report Type: 
  Country: None (occurrence: None)
  Receive Date: 20060803
  Receipt Date: 20060803
  Transmission Date: 20061208
  Serious: Yes (Other)
  Sender: FDA-Public Use
  Company Number: None

PATIENT
  Age: 44 Year
  Sex: Female
  Weight: 104.3273 kg

DRUGS (2)
  1. LEVAQUIN [Suspect]
     Indication: INFECTION PROPHYLAXIS
     Dosage: 500MG 1 PER DAY PO
     Route: 048
     Dates: start: 20060519, end: 20060522
  2. LEVAQUIN [Suspect]
     Indication: POSTOPERATIVE CARE
     Dosage: 500MG 1 PER DAY PO
     Route: 048
     Dates: start: 20060519, end: 20060522

REACTIONS (4)
  - ARTHRALGIA [None]
  - BACK PAIN [None]
  - MYALGIA [None]
  - THERAPY NON-RESPONDER [None]
